FAERS Safety Report 9500953 (Version 1)
Quarter: 2013Q3

REPORT INFORMATION
  Report Type: Report from Study
  Country: AU (occurrence: AU)
  Receive Date: 20130905
  Receipt Date: 20130905
  Transmission Date: 20140515
  Serious: Yes (Hospitalization, Other)
  Sender: FDA-Public Use
  Company Number: PHHY2013AU095344

PATIENT
  Age: 56 Year
  Sex: Male

DRUGS (3)
  1. CICLOSPORIN [Suspect]
     Indication: RENAL TRANSPLANT
     Dosage: 600 MG, QD
     Route: 048
     Dates: start: 20110728
  2. MYCOPHENOLATE MOFETIL [Suspect]
     Dates: start: 20070508
  3. PREDNISOLONE [Suspect]
     Dates: start: 20070511

REACTIONS (4)
  - Urinary tract infection [Not Recovered/Not Resolved]
  - Confusional state [Not Recovered/Not Resolved]
  - Head injury [Unknown]
  - Fall [Unknown]
